FAERS Safety Report 13859456 (Version 1)
Quarter: 2017Q3

REPORT INFORMATION
  Report Type: Spontaneous
  Country: US (occurrence: US)
  Receive Date: 20170811
  Receipt Date: 20170811
  Transmission Date: 20171127
  Serious: No
  Sender: FDA-Public Use
  Company Number: US-PERRIGO-17US023658

PATIENT
  Age: 4 Month
  Sex: Male
  Weight: 6.8 kg

DRUGS (1)
  1. LORATADINE. [Suspect]
     Active Substance: LORATADINE
     Indication: EXPOSURE DURING BREAST FEEDING
     Dosage: UNKNOWN, SINGLE
     Route: 048
     Dates: start: 20170511, end: 20170511

REACTIONS (1)
  - Exposure during breast feeding [Recovered/Resolved]

NARRATIVE: CASE EVENT DATE: 20170511
